FAERS Safety Report 10129227 (Version 1)
Quarter: 2014Q2

REPORT INFORMATION
  Report Type: Report from Study
  Country: US (occurrence: US)
  Receive Date: 20140428
  Receipt Date: 20140428
  Transmission Date: 20141212
  Serious: No
  Sender: FDA-Public Use
  Company Number: US-ABBVIE-14P-163-1201421-00

PATIENT
  Age: 56 Year
  Sex: Male
  Weight: 81.72 kg

DRUGS (2)
  1. ANDROGEL [Suspect]
     Indication: TESTICULAR FAILURE
     Route: 061
     Dates: start: 201309, end: 201312
  2. ANDROGEL [Suspect]
     Indication: PRODUCT USED FOR UNKNOWN INDICATION
     Dates: start: 200811, end: 201309

REACTIONS (3)
  - Decreased interest [Not Recovered/Not Resolved]
  - Asthenia [Not Recovered/Not Resolved]
  - Asthenia [Not Recovered/Not Resolved]
